FAERS Safety Report 7558128-3 (Version None)
Quarter: 2011Q2

REPORT INFORMATION
  Report Type: 
  Country: None (occurrence: None)
  Receive Date: 20110620
  Receipt Date: 20110607
  Transmission Date: 20111010
  Serious: Yes (Other)
  Sender: FDA-Public Use
  Company Number: CA-JNJFOC-20110604430

PATIENT
  Sex: Male
  Weight: 74 kg

DRUGS (8)
  1. REMICADE [Suspect]
     Indication: RHEUMATOID ARTHRITIS
     Route: 042
     Dates: start: 20060810
  2. MORPHINE [Concomitant]
     Route: 065
  3. HALCION [Concomitant]
     Route: 065
  4. OTHER THERAPEUTIC MEDICATION [Concomitant]
     Route: 050
  5. FOSAMAX [Concomitant]
     Route: 065
  6. COUMADIN [Concomitant]
     Route: 065
  7. METHOTREXATE [Concomitant]
     Route: 065
  8. DILTIAZEM [Concomitant]
     Route: 065

REACTIONS (1)
  - INGUINAL HERNIA [None]
